FAERS Safety Report 7066347-8 (Version None)
Quarter: 2010Q4

REPORT INFORMATION
  Report Type: 
  Country: None (occurrence: None)
  Receive Date: 20101027
  Receipt Date: 20100330
  Transmission Date: 20110411
  Serious: Yes (Hospitalization, Other)
  Sender: FDA-Public Use
  Company Number: US-WYE-H05189708

PATIENT
  Sex: Female
  Weight: 72.64 kg

DRUGS (7)
  1. PREMPRO [Suspect]
  2. OGEN [Suspect]
  3. MEDROXYPROGESTERONE ACETATE [Suspect]
  4. PREMARIN [Suspect]
  5. PROVERA [Suspect]
  6. AMEN [Suspect]
  7. FEMHRT [Suspect]

REACTIONS (1)
  - BREAST CANCER [None]
